FAERS Safety Report 8613356 (Version 2)
Quarter: 2013Q1

REPORT INFORMATION
  Report Type: Spontaneous
  Country: US (occurrence: US)
  Receive Date: 20120613
  Receipt Date: 20130307
  Transmission Date: 20140127
  Serious: Yes (Hospitalization, Other)
  Sender: FDA-Public Use
  Company Number: US-ASTRAZENECA-2012SE37159

PATIENT
  Age: 58 Year
  Sex: Female
  Weight: 56.2 kg

DRUGS (7)
  1. SEROQUEL XR [Suspect]
     Indication: BIPOLAR DISORDER
     Route: 048
     Dates: start: 201109
  2. CRESTOR [Suspect]
     Indication: BLOOD CHOLESTEROL INCREASED
     Route: 048
     Dates: start: 2011
  3. BLOOD THINNER [Concomitant]
  4. BLOOD PRESSURE [Concomitant]
  5. MEDICATION [Concomitant]
     Indication: RESTLESS LEGS SYNDROME
  6. PROTONICS [Concomitant]
     Indication: ULCER
  7. INHALERS [Concomitant]
     Indication: ASTHMA

REACTIONS (7)
  - Myocardial infarction [Unknown]
  - Dehydration [Unknown]
  - Asthma [Unknown]
  - Cardiac disorder [Unknown]
  - Angiopathy [Unknown]
  - Memory impairment [Unknown]
  - Drug dose omission [Unknown]
